FAERS Safety Report 6460564-3 (Version None)
Quarter: 2009Q4

REPORT INFORMATION
  Report Type: 
  Country: None (occurrence: None)
  Receive Date: 20091125
  Receipt Date: 20091125
  Transmission Date: 20100525
  Serious: Yes (Hospitalization)
  Sender: FDA-Public Use
  Company Number: None

PATIENT
  Age: 37 Year
  Sex: Male

DRUGS (2)
  1. PROACTIV, BENZOYL PEROXIDE 2.5 %, GUTHY-RENKER LLC [Suspect]
     Indication: ACNE
     Dosage: DAILY, TOPICAL
     Route: 061
  2. REPAIRING LOTION, GLYCOLIC ACID 6.0%, GUTHY-RENKER [Suspect]
     Indication: ACNE
     Dosage: DAILY, TOPICAL
     Route: 061

REACTIONS (3)
  - DYSPNOEA [None]
  - ERYTHEMA [None]
  - SWELLING FACE [None]
